FAERS Safety Report 5802727-3 (Version None)
Quarter: 2008Q3

REPORT INFORMATION
  Report Type: 
  Country: None (occurrence: None)
  Receive Date: 20080708
  Receipt Date: 20080626
  Transmission Date: 20090109
  Serious: Yes (Hospitalization, Other)
  Sender: FDA-Public Use
  Company Number: GB-JNJFOC-20080606802

PATIENT
  Sex: Male
  Weight: 85 kg

DRUGS (10)
  1. REMICADE [Suspect]
     Indication: RHEUMATOID ARTHRITIS
     Route: 042
  2. METHOTREXATE [Concomitant]
  3. CHLORPHENAMINE [Concomitant]
  4. DF 118 [Concomitant]
  5. FOLIC ACID [Concomitant]
  6. GLUCOSAMINE [Concomitant]
  7. HYDROXYCHLOROQUINE SULFATE [Concomitant]
  8. RANITIDINE HCL [Concomitant]
  9. SULPHADIAZINE [Concomitant]
  10. VOLTAREN [Concomitant]

REACTIONS (1)
  - JOINT DISLOCATION [None]
